FAERS Safety Report 24786094 (Version 1)
Quarter: 2024Q4

REPORT INFORMATION
  Report Type: Spontaneous
  Country: US (occurrence: US)
  Receive Date: 20241229
  Receipt Date: 20241229
  Transmission Date: 20250114
  Serious: No
  Sender: BAUSCH AND LOMB
  Company Number: US-BAUSCHBL-2024BNL039256

PATIENT
  Sex: Male

DRUGS (1)
  1. NEOMYCIN AND POLYMYXIN B SULFATES AND HYDROCORTISONE [Suspect]
     Active Substance: HYDROCORTISONE\NEOMYCIN SULFATE\POLYMYXIN B SULFATE
     Indication: Product used for unknown indication
     Dosage: OTIC SOLUTION
     Route: 001

REACTIONS (6)
  - Ear infection [Unknown]
  - Excessive cerumen production [Unknown]
  - Product dispensing issue [Unknown]
  - Product container issue [Unknown]
  - Product complaint [Unknown]
  - Product delivery mechanism issue [Unknown]
